FAERS Safety Report 8297926-8 (Version None)
Quarter: 2012Q2

REPORT INFORMATION
  Report Type: 
  Country: None (occurrence: None)
  Receive Date: 20120419
  Receipt Date: 20120417
  Transmission Date: 20120825
  Serious: Yes (Hospitalization, Other)
  Sender: FDA-Public Use
  Company Number: US-AMGEN-USASP2012024129

PATIENT
  Age: 78 Year
  Sex: Female

DRUGS (8)
  1. LIPITOR [Concomitant]
  2. SPIRIVA [Concomitant]
  3. SINGULAIR [Concomitant]
  4. ALVESCO [Concomitant]
  5. MAVIK [Concomitant]
  6. CARDIZEM [Concomitant]
  7. NITROGLYCERIN [Concomitant]
  8. PROLIA [Suspect]
     Indication: OSTEOPOROSIS POSTMENOPAUSAL
     Dosage: UNK UNK, Q6MO

REACTIONS (6)
  - FALL [None]
  - SPINAL FRACTURE [None]
  - MUSCLE SPASMS [None]
  - BONE PAIN [None]
  - PARAESTHESIA [None]
  - PAIN IN EXTREMITY [None]
